FAERS Safety Report 6566940-2 (Version None)
Quarter: 2010Q1

REPORT INFORMATION
  Report Type: 
  Country: None (occurrence: None)
  Receive Date: 20100202
  Receipt Date: 20100127
  Transmission Date: 20100710
  Serious: Yes (Hospitalization)
  Sender: FDA-Public Use
  Company Number: IT-TEVA-222632ISR

PATIENT
  Sex: Male

DRUGS (9)
  1. VINCRISTINE [Suspect]
     Indication: ACUTE LYMPHOCYTIC LEUKAEMIA
     Route: 042
     Dates: start: 20090319, end: 20090319
  2. CYCLOPHOSPHAMIDE [Suspect]
     Indication: ACUTE LYMPHOCYTIC LEUKAEMIA
     Route: 042
     Dates: start: 20090313, end: 20090317
  3. RITUXIMAB [Suspect]
     Indication: ACUTE LYMPHOCYTIC LEUKAEMIA
     Route: 042
     Dates: start: 20090319, end: 20090319
  4. METHYLPREDNISOLONE SODIUM SUCCINATE [Suspect]
     Indication: ACUTE LYMPHOCYTIC LEUKAEMIA
     Route: 042
     Dates: start: 20090313, end: 20090317
  5. CYTARABINE [Suspect]
     Indication: ACUTE LYMPHOCYTIC LEUKAEMIA
     Route: 042
     Dates: start: 20090323, end: 20090324
  6. IFOSFAMIDE [Suspect]
     Indication: ACUTE LYMPHOCYTIC LEUKAEMIA
     Route: 042
     Dates: start: 20090320, end: 20090324
  7. METHOTREXATE [Suspect]
     Route: 042
     Dates: start: 20090319
  8. DESAMETASONE (DEXAMETHASONE) [Suspect]
     Route: 042
     Dates: start: 20090320, end: 20090324
  9. TENIPOSIDE [Suspect]
     Route: 042
     Dates: start: 20090323, end: 20090324

REACTIONS (3)
  - ESCHERICHIA SEPSIS [None]
  - HYPERPYREXIA [None]
  - STOMATITIS [None]
